FAERS Safety Report 13072245 (Version 3)
Quarter: 2017Q1

REPORT INFORMATION
  Report Type: Report from Study
  Country: US (occurrence: US)
  Receive Date: 20161229
  Receipt Date: 20170322
  Transmission Date: 20170428
  Serious: No
  Sender: FDA-Public Use
  Company Number: US-ACTELION-A-NJ2016-146926

PATIENT
  Age: 78 Year
  Sex: Female

DRUGS (3)
  1. ADCIRCA [Concomitant]
     Active Substance: TADALAFIL
  2. ORENITRAM [Concomitant]
     Active Substance: TREPROSTINIL
  3. OPSUMIT [Suspect]
     Active Substance: MACITENTAN
     Indication: PULMONARY HYPERTENSION
     Dosage: 10 MG, QD
     Route: 048

REACTIONS (14)
  - Aspartate aminotransferase increased [Unknown]
  - Faeces discoloured [Unknown]
  - Insomnia [Unknown]
  - Weight decreased [Unknown]
  - Malaise [Unknown]
  - Hepatic enzyme increased [Unknown]
  - Decreased appetite [Unknown]
  - Abdominal pain upper [Unknown]
  - Poor peripheral circulation [Unknown]
  - Pain [Unknown]
  - Hepatitis B virus test positive [Unknown]
  - Ocular icterus [Unknown]
  - Blood alkaline phosphatase increased [Unknown]
  - Right ventricular systolic pressure increased [Unknown]
